FAERS Safety Report 7617913-X (Version None)
Quarter: 2011Q3

REPORT INFORMATION
  Report Type: 
  Country: None (occurrence: None)
  Receive Date: 20110718
  Receipt Date: 20110701
  Transmission Date: 20111222
  Serious: Yes (Other)
  Sender: FDA-Public Use
  Company Number: PHHY2011BR59334

PATIENT
  Sex: Female

DRUGS (4)
  1. INSULIN [Suspect]
  2. DIOVAN [Suspect]
     Dosage: 160 MG, UNK
     Route: 048
  3. DIOCOVARSE [Suspect]
  4. NIMODIPINE [Suspect]

REACTIONS (4)
  - CEREBROVASCULAR ACCIDENT [None]
  - DIABETES MELLITUS [None]
  - OVERWEIGHT [None]
  - HEAD DISCOMFORT [None]
